FAERS Safety Report 11433251 (Version 1)
Quarter: 2015Q3

REPORT INFORMATION
  Report Type: Report from Study
  Country: KR (occurrence: KR)
  Receive Date: 20150830
  Receipt Date: 20150830
  Transmission Date: 20151125
  Serious: Yes (Death)
  Sender: FDA-Public Use
  Company Number: KR-SHIONOGI, INC-2015000942

PATIENT
  Age: 76 Year
  Sex: Female

DRUGS (19)
  1. DEXAMETHASONE DISODIUM PHOSPHATE [Concomitant]
     Active Substance: DEXAMETHASONE SODIUM PHOSPHATE
     Indication: MENINGITIS TUBERCULOUS
     Dosage: UNK
     Route: 065
     Dates: start: 20150526, end: 20150626
  2. DORIPENEM [Suspect]
     Active Substance: DORIPENEM
     Dosage: 1.5 G, QD
     Route: 065
     Dates: start: 20150624, end: 20150626
  3. ONEFLU [Concomitant]
     Indication: URINARY TRACT INFECTION
     Dosage: UNK
     Route: 065
     Dates: start: 20150620, end: 20150626
  4. RIFODEX [Concomitant]
     Indication: DISSEMINATED TUBERCULOSIS
     Dosage: UNK
     Route: 065
     Dates: start: 20150526, end: 20150626
  5. MYAMBUTOL [Concomitant]
     Active Substance: ETHAMBUTOL HYDROCHLORIDE
     Indication: DISSEMINATED TUBERCULOSIS
     Dosage: UNK
     Route: 065
     Dates: start: 20150526, end: 20150626
  6. MOSAPID [Concomitant]
     Indication: PROPHYLAXIS
     Dosage: UNK
     Route: 065
     Dates: start: 20150605, end: 20150626
  7. ELCARTIN [Concomitant]
     Indication: EMBOLIC CEREBRAL INFARCTION
     Dosage: UNK
     Route: 065
     Dates: start: 20150609, end: 20150626
  8. UROCITRA C [Concomitant]
     Indication: URINARY TRACT INFECTION
     Dosage: UNK
     Route: 065
     Dates: start: 20150622, end: 20150625
  9. METRONIDAZOLE. [Concomitant]
     Active Substance: METRONIDAZOLE
     Indication: GASTROENTERITIS
     Dosage: UNK
     Route: 065
     Dates: start: 20150626, end: 20150626
  10. ROISOL [Concomitant]
     Dosage: UNK
     Route: 065
     Dates: start: 20150526, end: 20150626
  11. PANTOLOC                           /01263204/ [Concomitant]
     Active Substance: PANTOPRAZOLE SODIUM
     Indication: PROPHYLAXIS
     Dosage: UNK
     Route: 065
     Dates: start: 20150603, end: 20150626
  12. PLIDOXINE [Concomitant]
     Indication: DISSEMINATED TUBERCULOSIS
     Dosage: UNK
     Route: 065
     Dates: start: 20150526, end: 20150626
  13. ASPIRIN                            /00002701/ [Concomitant]
     Active Substance: ASPIRIN
     Indication: EMBOLIC CEREBRAL INFARCTION
     Dosage: UNK
     Route: 065
     Dates: start: 20150624, end: 20150626
  14. LASIX [Concomitant]
     Active Substance: FUROSEMIDE
     Dosage: UNK
     Route: 065
     Dates: start: 20150624, end: 20150626
  15. STREPTOMYCIN SULFATE. [Concomitant]
     Active Substance: STREPTOMYCIN SULFATE
     Indication: MENINGITIS TUBERCULOUS
     Dosage: UNK
     Route: 065
     Dates: start: 20150623, end: 20150625
  16. KETOCIN                            /01001802/ [Concomitant]
     Indication: MENINGITIS TUBERCULOUS
     Dosage: UNK
     Route: 065
     Dates: start: 20150626, end: 20150626
  17. YUHAN-ZID [Concomitant]
     Indication: DISSEMINATED TUBERCULOSIS
     Dosage: UNK
     Route: 065
     Dates: start: 20150526, end: 20150626
  18. LABESIN [Concomitant]
     Indication: MENINGITIS TUBERCULOUS
     Dosage: UNK
     Route: 065
     Dates: start: 20150624, end: 20150625
  19. PACETA [Concomitant]
     Indication: PAIN
     Dosage: UNK
     Route: 065
     Dates: start: 20150624, end: 20150626

REACTIONS (1)
  - Shock [Fatal]

NARRATIVE: CASE EVENT DATE: 20150626
